FAERS Safety Report 9201244 (Version 2)
Quarter: 2013Q2

REPORT INFORMATION
  Report Type: Spontaneous
  Country: US (occurrence: None)
  Receive Date: 20130327
  Receipt Date: 20130415
  Transmission Date: 20140414
  Serious: Yes (Hospitalization)
  Sender: FDA-Public Use
  Company Number: UTC-030136

PATIENT
  Age: 76 Year
  Sex: Male
  Weight: 72.7 kg

DRUGS (4)
  1. TYVASO [Suspect]
     Indication: PULMONARY ARTERIAL HYPERTENSION
     Dosage: (18 MCG, 4 IN 1 D)
     Route: 055
     Dates: start: 20130222, end: 20130311
  2. REMODULIN [Suspect]
     Indication: PULMONARY ARTERIAL HYPERTENSION
     Dosage: (0.064  UG/KG, 1 IN 1 MIN)
     Route: 041
     Dates: start: 20100519
  3. COUMADIN (WARFARIN SODIUM) [Concomitant]
  4. REVATIO (SILDENAFIL CITRATE) (UNKNOWN) (SILDENAFIL) [Concomitant]

REACTIONS (2)
  - Cough [None]
  - Dyspnoea [None]
